FAERS Safety Report 14855043 (Version 1)
Quarter: 2018Q2

REPORT INFORMATION
  Report Type: Spontaneous
  Country: TJ (occurrence: TJ)
  Receive Date: 20180507
  Receipt Date: 20180507
  Transmission Date: 20180711
  Serious: Yes (Death, Other)
  Sender: FDA-Public Use
  Company Number: PHHY2018TJ002751

PATIENT
  Sex: Male

DRUGS (1)
  1. GLIVEC [Suspect]
     Active Substance: IMATINIB MESYLATE
     Indication: CHRONIC MYELOID LEUKAEMIA
     Dosage: 600 MG, UNK
     Route: 065

REACTIONS (9)
  - Haemoglobin increased [Unknown]
  - Blast cell count increased [Unknown]
  - Haemorrhage intracranial [Fatal]
  - White blood cell count increased [Unknown]
  - Myelocyte count decreased [Unknown]
  - Red blood cell count decreased [Unknown]
  - Reticulocyte count increased [Unknown]
  - Laboratory test abnormal [Unknown]
  - Platelet count decreased [Unknown]
